FAERS Safety Report 5568533-2 (Version None)
Quarter: 2007Q4

REPORT INFORMATION
  Report Type: 
  Country: None (occurrence: None)
  Receive Date: 20071217
  Receipt Date: 20071127
  Transmission Date: 20080405
  Serious: Yes (Other)
  Sender: FDA-Public Use
  Company Number: 2007PL000031

PATIENT
  Age: 65 Year
  Sex: Male

DRUGS (2)
  1. IMURAN [Suspect]
     Indication: AUTOIMMUNE HEPATITIS
     Dosage: PO
     Route: 048
  2. PREDNISONE TAB [Concomitant]

REACTIONS (3)
  - LEG AMPUTATION [None]
  - METASTASES TO LYMPH NODES [None]
  - NEUROENDOCRINE CARCINOMA OF THE SKIN [None]
